FAERS Safety Report 19461205 (Version 1)
Quarter: 2021Q2

REPORT INFORMATION
  Report Type: Spontaneous
  Country: US (occurrence: US)
  Receive Date: 20210625
  Receipt Date: 20210625
  Transmission Date: 20210717
  Serious: Yes (Hospitalization, Other)
  Sender: FDA-Public Use
  Company Number: US-HIKMA PHARMACEUTICALS USA INC.-US-H14001-21-54694

PATIENT
  Age: 86 Year
  Sex: Male

DRUGS (5)
  1. CEFAZOLIN [Suspect]
     Active Substance: CEFAZOLIN
     Indication: ARTHRITIS INFECTIVE
     Dosage: UNKNOWN
     Route: 041
  2. PREDNISONE. [Concomitant]
     Active Substance: PREDNISONE
     Indication: RHEUMATOID ARTHRITIS
     Route: 065
  3. RIFAMPIN. [Interacting]
     Active Substance: RIFAMPIN
     Indication: ARTHRITIS INFECTIVE
     Route: 048
  4. CEFAZOLIN [Interacting]
     Active Substance: CEFAZOLIN
     Indication: STAPHYLOCOCCAL INFECTION
  5. HEPARIN [Concomitant]
     Active Substance: HEPARIN SODIUM
     Indication: THROMBOSIS PROPHYLAXIS
     Dosage: UNKNOWN
     Route: 058

REACTIONS (4)
  - Drug interaction [Recovered/Resolved]
  - Hypoprothrombinaemia [Recovered/Resolved]
  - Haemorrhage [Recovered/Resolved]
  - Coagulopathy [Recovered/Resolved]
